FAERS Safety Report 6231048-2 (Version None)
Quarter: 2009Q2

REPORT INFORMATION
  Report Type: 
  Country: None (occurrence: None)
  Receive Date: 20090616
  Receipt Date: 20090608
  Transmission Date: 20091009
  Serious: Yes (Hospitalization, Other)
  Sender: FDA-Public Use
  Company Number: DE-ROCHE-631979

PATIENT
  Sex: Male

DRUGS (10)
  1. CELLCEPT [Suspect]
     Indication: RENAL TRANSPLANT
     Route: 048
     Dates: start: 20050101, end: 20090101
  2. PROGRAF [Suspect]
     Indication: RENAL TRANSPLANT
     Route: 048
     Dates: start: 20050101, end: 20090101
  3. NORVASC [Concomitant]
     Route: 048
     Dates: start: 20080101, end: 20090101
  4. ATACAND [Concomitant]
     Route: 048
     Dates: start: 20080101, end: 20090101
  5. ZOCOR [Concomitant]
     Indication: HYPERLIPIDAEMIA
     Route: 048
     Dates: start: 20000101, end: 20090101
  6. INSULIN [Concomitant]
     Indication: DIABETES MELLITUS
  7. NACOM [Concomitant]
  8. ALLOPURINOL [Concomitant]
  9. REMERGIL [Concomitant]
  10. FLUVOXAMINE MALEATE [Concomitant]

REACTIONS (7)
  - ASCITES [None]
  - HEPATIC CIRRHOSIS [None]
  - HEPATIC FIBROSIS [None]
  - PANCYTOPENIA [None]
  - PELIOSIS HEPATIS [None]
  - PRURITUS [None]
  - SPLENOMEGALY [None]
